FAERS Safety Report 19047153 (Version 2)
Quarter: 2021Q2

REPORT INFORMATION
  Report Type: Spontaneous
  Country: US (occurrence: US)
  Receive Date: 20210323
  Receipt Date: 20210607
  Transmission Date: 20210717
  Serious: Yes (Other)
  Sender: FDA-Public Use
  Company Number: US-PFIZER INC-2021228400

PATIENT
  Age: 57 Year
  Sex: Female

DRUGS (9)
  1. BRAFTOVI [Suspect]
     Active Substance: ENCORAFENIB
     Dosage: 150 MG, DAILY (2 TABLETS)
     Dates: start: 20191205, end: 201912
  2. BRAFTOVI [Suspect]
     Active Substance: ENCORAFENIB
     Dosage: UNK
     Dates: start: 20191125, end: 20191127
  3. BRAFTOVI [Suspect]
     Active Substance: ENCORAFENIB
     Dosage: 375 MG, DAILY (5 TABLETS)
     Dates: start: 20191226
  4. MEKTOVI [Suspect]
     Active Substance: BINIMETINIB
     Dosage: UNK
     Dates: start: 20191125, end: 20191127
  5. BRAFTOVI [Suspect]
     Active Substance: ENCORAFENIB
     Dosage: 225 MG, DAILY (3 TABLETS)
     Dates: start: 20191211, end: 201912
  6. MEKTOVI [Suspect]
     Active Substance: BINIMETINIB
     Dosage: 15 MG, 2X/DAY
     Dates: start: 20191205
  7. MEKTOVI [Suspect]
     Active Substance: BINIMETINIB
     Dosage: UNK
     Dates: end: 202003
  8. BRAFTOVI [Suspect]
     Active Substance: ENCORAFENIB
     Dosage: 300 MG, DAILY (4 TABLETS)
     Dates: start: 20191218, end: 201912
  9. BRAFTOVI [Suspect]
     Active Substance: ENCORAFENIB
     Dosage: UNK
     Dates: end: 202003

REACTIONS (4)
  - Taste disorder [Recovering/Resolving]
  - Blood pressure abnormal [Recovering/Resolving]
  - Rash [Recovering/Resolving]
  - Vision blurred [Recovering/Resolving]

NARRATIVE: CASE EVENT DATE: 201911
